FAERS Safety Report 21217987 (Version 1)
Quarter: 2022Q3

REPORT INFORMATION
  Report Type: Spontaneous
  Country: US (occurrence: None)
  Receive Date: 20220815
  Receipt Date: 20220815
  Transmission Date: 20221027
  Serious: No
  Sender: FDA-Public Use
  Company Number: None

PATIENT
  Sex: Male

DRUGS (1)
  1. MYCOPHENOLATE MOFETIL [Suspect]
     Active Substance: MYCOPHENOLATE MOFETIL
     Indication: Stiff person syndrome
     Dosage: 5MG TWICE DAILY ORAL
     Route: 048
     Dates: start: 201909

REACTIONS (5)
  - Pyrexia [None]
  - Hypertension [None]
  - Vomiting [None]
  - Autonomic nervous system imbalance [None]
  - Off label use [None]
